FAERS Safety Report 6150707-3 (Version None)
Quarter: 2009Q2

REPORT INFORMATION
  Report Type: 
  Country: None (occurrence: None)
  Receive Date: 20090409
  Receipt Date: 20090406
  Transmission Date: 20091009
  Serious: Yes (Death, Hospitalization)
  Sender: FDA-Public Use
  Company Number: PHHY2009BR13106

PATIENT
  Age: 73 Year
  Sex: Female

DRUGS (6)
  1. FEMARA [Suspect]
     Indication: BREAST CANCER
     Dosage: 80MG EVERY 8 HOURS
  2. MORPHINE [Concomitant]
  3. GABAPENTIN [Concomitant]
     Indication: PAIN
  4. FRONTAL [Concomitant]
     Indication: PAIN
  5. PURAN T4 [Concomitant]
     Indication: HYPOTHYROIDISM
  6. ARADOIS H [Concomitant]
     Indication: BLOOD PRESSURE
     Dosage: 25MG DAILY

REACTIONS (2)
  - DEATH [None]
  - METASTASES TO BONE [None]
